FAERS Safety Report 11167320 (Version 1)
Quarter: 2015Q2

REPORT INFORMATION
  Report Type: Spontaneous
  Country: US (occurrence: None)
  Receive Date: 20150603
  Receipt Date: 20150603
  Transmission Date: 20150821
  Serious: Yes (Death)
  Sender: FDA-Public Use
  Company Number: FK201502459

PATIENT
  Age: 88 Year
  Sex: Female
  Weight: 45 kg

DRUGS (9)
  1. MEPIVACAINE [Suspect]
     Active Substance: MEPIVACAINE\MEPIVACAINE HYDROCHLORIDE
     Indication: NERVE BLOCK
     Dosage: 15 ML, INCREMENTALLY
  2. METOPROLOL [Concomitant]
     Active Substance: METOPROLOL
  3. BUPIVACAINE W/EPINEPHRINE [Suspect]
     Active Substance: BUPIVACAINE\EPINEPHRINE
     Indication: NERVE BLOCK
     Dosage: 10 ML, INCREMENTALLLY
  4. LOSARTAN [Concomitant]
     Active Substance: LOSARTAN
  5. LEVOTHYROXINE [Concomitant]
     Active Substance: LEVOTHYROXINE
  6. HYDROCHLOROTHIASIDE [Concomitant]
  7. AMLODIPINE [Concomitant]
     Active Substance: AMLODIPINE BESYLATE
  8. BABY ASPIRIN (ACETYLSALICYLIC ACID) [Concomitant]
     Active Substance: ASPIRIN
  9. FENTANYL. [Concomitant]
     Active Substance: FENTANYL

REACTIONS (9)
  - Pulseless electrical activity [None]
  - Anaesthetic complication [None]
  - Toxicity to various agents [None]
  - Bradycardia [None]
  - Circulatory collapse [None]
  - Procedural complication [None]
  - Generalised tonic-clonic seizure [None]
  - Unresponsive to stimuli [None]
  - Atrioventricular block [None]
